FAERS Safety Report 19045507 (Version 1)
Quarter: 2021Q1

REPORT INFORMATION
  Report Type: Report from Study
  Country: US (occurrence: US)
  Receive Date: 20210323
  Receipt Date: 20210323
  Transmission Date: 20210420
  Serious: Yes (Hospitalization, Other)
  Sender: FDA-Public Use
  Company Number: US-GLAXOSMITHKLINE-US2021AMR063906

PATIENT
  Sex: Female

DRUGS (1)
  1. BELANTAMAB MAFODOTIN. [Suspect]
     Active Substance: BELANTAMAB MAFODOTIN
     Indication: PRODUCT USED FOR UNKNOWN INDICATION
     Dosage: UNK, 2.5MG/KG X1 DOSE
     Dates: start: 20210316

REACTIONS (4)
  - Dry mouth [Recovering/Resolving]
  - Hospitalisation [Recovering/Resolving]
  - Hypoxia [Recovering/Resolving]
  - Lip swelling [Recovering/Resolving]
